FAERS Safety Report 5953413-0 (Version None)
Quarter: 2008Q4

REPORT INFORMATION
  Report Type: 
  Country: None (occurrence: None)
  Receive Date: 20081031
  Receipt Date: 20080604
  Transmission Date: 20090506
  Serious: No
  Sender: FDA-Public Use
  Company Number: 2008PV035644

PATIENT
  Age: 75 Year
  Sex: Female

DRUGS (6)
  1. SYMLIN [Suspect]
     Indication: TYPE 2 DIABETES MELLITUS
     Dosage: 240 MCG; TID; SC
     Route: 058
     Dates: start: 20080501
  2. BYETTA [Concomitant]
  3. STARLIX [Concomitant]
  4. ACTOS [Concomitant]
  5. PREVACID [Concomitant]
  6. VALSARTAN [Concomitant]

REACTIONS (1)
  - INJECTION SITE PAIN [None]
